FAERS Safety Report 7792039-3 (Version None)
Quarter: 2011Q3

REPORT INFORMATION
  Report Type: 
  Country: None (occurrence: None)
  Receive Date: 20110930
  Receipt Date: 20110930
  Transmission Date: 20111222
  Serious: Yes (Death, Life-Threatening, Hospitalization)
  Sender: FDA-Public Use
  Company Number: None

PATIENT
  Age: 71 Year
  Sex: Male
  Weight: 99.7913 kg

DRUGS (1)
  1. AZITHROMYCIN [Suspect]
     Indication: DIARRHOEA
     Dosage: 5 PILL Z PAK 2 THE 1ST DAY + ONE FOR 4 DAYS
     Dates: start: 20110712, end: 20110716

REACTIONS (1)
  - JAUNDICE [None]
